FAERS Safety Report 17831531 (Version 1)
Quarter: 2020Q2

REPORT INFORMATION
  Report Type: Spontaneous
  Country: DE (occurrence: DE)
  Receive Date: 20200527
  Receipt Date: 20200527
  Transmission Date: 20200714
  Serious: Yes (Hospitalization)
  Sender: FDA-Public Use
  Company Number: DE-009507513-2005DEU007872

PATIENT
  Age: 31 Year
  Sex: Female

DRUGS (8)
  1. ORGALUTRAN [Suspect]
     Active Substance: GANIRELIX ACETATE
     Dosage: UNK
  2. GONAL-F [Suspect]
     Active Substance: FOLLITROPIN
     Dosage: UNK
  3. MENOGON [Suspect]
     Active Substance: MENOTROPINS
     Dosage: UNK
  4. FOLIC ACID. [Suspect]
     Active Substance: FOLIC ACID
     Dosage: UNK
  5. FRAGMIN P FORTE [Suspect]
     Active Substance: DALTEPARIN SODIUM
     Dosage: UNK
  6. TRIPTOFEM [Suspect]
     Active Substance: TRIPTORELIN ACETATE
     Dosage: UNK, STRENGTH: 01, MG/ML. PRE-FILLED SYRINGE
  7. ESTRIFAM [Suspect]
     Active Substance: ESTRADIOL
     Dosage: UNK
  8. PROGESTAN [Suspect]
     Active Substance: PROGESTERONE
     Dosage: UNK

REACTIONS (1)
  - Uterine hyperstimulation [Recovered/Resolved]

NARRATIVE: CASE EVENT DATE: 20150623
